FAERS Safety Report 11164649 (Version 4)
Quarter: 2015Q4

REPORT INFORMATION
  Report Type: Report from Study
  Country: DE (occurrence: DE)
  Receive Date: 20150604
  Receipt Date: 20151012
  Transmission Date: 20160304
  Serious: No
  Sender: FDA-Public Use
  Company Number: DE-UCBSA-2015016789

PATIENT
  Age: 80 Year
  Sex: Female
  Weight: 80 kg

DRUGS (3)
  1. BISOPROLOL [Concomitant]
     Active Substance: BISOPROLOL
     Indication: ATRIAL PRESSURE INCREASED
     Dosage: 1/2 TABLET (2.5 G, ONCE DAILY (QD))
     Route: 048
     Dates: start: 2011
  2. LACOSAMIDE EP [Suspect]
     Active Substance: LACOSAMIDE
     Indication: EPILEPSY
     Dosage: 1 DF (TABLET), 2X/DAY (BID)
     Route: 048
     Dates: start: 201111
  3. AMLODIPINE [Concomitant]
     Active Substance: AMLODIPINE BESYLATE
     Indication: ATRIAL PRESSURE INCREASED
     Dosage: 5 MG, ONCE DAILY (QD)
     Route: 048

REACTIONS (1)
  - Sinus bradycardia [Recovered/Resolved]

NARRATIVE: CASE EVENT DATE: 20140915
